FAERS Safety Report 6060256-9 (Version None)
Quarter: 2009Q1

REPORT INFORMATION
  Report Type: 
  Country: None (occurrence: None)
  Receive Date: 20090129
  Receipt Date: 20090115
  Transmission Date: 20090719
  Serious: Yes (Death)
  Sender: FDA-Public Use
  Company Number: 2009000163

PATIENT
  Age: 80 Year
  Sex: Male
  Weight: 67.5 kg

DRUGS (10)
  1. ERLOTINIB    (TABLET) (ERLOTINIB) [Suspect]
     Indication: LUNG ADENOCARCINOMA
     Dosage: (150 MG,QD),ORAL ; (150 MG,QOD),ORAL
     Route: 048
     Dates: start: 20081016, end: 20081227
  2. ERLOTINIB    (TABLET) (ERLOTINIB) [Suspect]
     Indication: LUNG ADENOCARCINOMA
     Dosage: (150 MG,QD),ORAL ; (150 MG,QOD),ORAL
     Route: 048
     Dates: start: 20081105
  3. DEPAS (ETIZOLAM) [Concomitant]
  4. PITAVASTATIN [Concomitant]
  5. CANDESARTAN CILEXETIL [Concomitant]
  6. TIZANIDINE HCL [Concomitant]
  7. ZOLPIDEM TARTRATE [Concomitant]
  8. MAGNESIUM OXIDE (MAGNESIUM OXIDE) [Concomitant]
  9. SIGMART (NICORANDIL) [Concomitant]
  10. LORAZEPAM [Concomitant]

REACTIONS (3)
  - DERMATITIS ACNEIFORM [None]
  - DIARRHOEA [None]
  - SEBORRHOEIC DERMATITIS [None]
